FAERS Safety Report 5665010-5 (Version None)
Quarter: 2008Q1

REPORT INFORMATION
  Report Type: 
  Country: None (occurrence: None)
  Receive Date: 20080314
  Receipt Date: 20080303
  Transmission Date: 20080703
  Serious: Yes (Other)
  Sender: FDA-Public Use
  Company Number: US-PFIZER INC-2008020299

PATIENT
  Sex: Male
  Weight: 77.1 kg

DRUGS (1)
  1. DILANTIN [Suspect]
     Indication: CONVULSION
     Route: 048

REACTIONS (3)
  - ADVERSE DRUG REACTION [None]
  - GRAND MAL CONVULSION [None]
  - VAGAL NERVE STIMULATOR IMPLANTATION [None]
